FAERS Safety Report 12953248 (Version 1)
Quarter: 2016Q4

REPORT INFORMATION
  Report Type: Spontaneous
  Country: US (occurrence: US)
  Receive Date: 20161117
  Receipt Date: 20161117
  Transmission Date: 20170207
  Serious: No
  Sender: FDA-Public Use
  Company Number: GXBR2016US002956

PATIENT
  Sex: Female
  Weight: 57.14 kg

DRUGS (1)
  1. METRONIDAZOLE. [Suspect]
     Active Substance: METRONIDAZOLE
     Indication: ROSACEA
     Dosage: UNK DF, BID
     Route: 061
     Dates: end: 201608

REACTIONS (9)
  - Eye infection [Not Recovered/Not Resolved]
  - Eye pruritus [Unknown]
  - Lacrimation increased [Recovering/Resolving]
  - Eye swelling [Recovering/Resolving]
  - Eye irritation [Unknown]
  - Eyelid margin crusting [Recovering/Resolving]
  - Vision blurred [Recovering/Resolving]
  - Dry eye [Unknown]
  - Ocular hyperaemia [Not Recovered/Not Resolved]
